FAERS Safety Report 21308827 (Version 1)
Quarter: 2022Q3

REPORT INFORMATION
  Report Type: Report from Study
  Country: US (occurrence: US)
  Receive Date: 20220908
  Receipt Date: 20220908
  Transmission Date: 20221027
  Serious: Yes (Other)
  Sender: FDA-Public Use
  Company Number: US-UCBSA-2022051822

PATIENT
  Sex: Female
  Weight: 63 kg

DRUGS (6)
  1. LEVETIRACETAM [Suspect]
     Active Substance: LEVETIRACETAM
     Indication: Seizure
     Dosage: 500MG 8 TABS AT BED TIME, ONCE DAILY (QD)
     Route: 048
  2. VIMPAT [Suspect]
     Active Substance: LACOSAMIDE
     Indication: Seizure
     Dosage: 100 MILLIGRAM, 2X/DAY (BID)
     Route: 048
  3. OXCARBAZEPINE [Concomitant]
     Active Substance: OXCARBAZEPINE
     Indication: Seizure
  4. VITAMIN B12 [Concomitant]
     Active Substance: CYANOCOBALAMIN
     Indication: Product used for unknown indication
  5. VITAMIN D3 [Concomitant]
     Active Substance: CHOLECALCIFEROL
     Indication: Product used for unknown indication
  6. MAGNESIUM [Concomitant]
     Active Substance: MAGNESIUM
     Indication: Product used for unknown indication

REACTIONS (17)
  - Seizure [Unknown]
  - Simple partial seizures [Unknown]
  - Loss of consciousness [Unknown]
  - Frustration tolerance decreased [Unknown]
  - Memory impairment [Unknown]
  - Disorientation [Unknown]
  - Postictal state [Unknown]
  - Anxiety [Unknown]
  - Headache [Unknown]
  - Urinary incontinence [Unknown]
  - Cognitive disorder [Unknown]
  - Fatigue [Unknown]
  - Visual impairment [Unknown]
  - Disturbance in attention [Unknown]
  - Nervousness [Unknown]
  - Initial insomnia [Unknown]
  - Somnolence [Unknown]
